FAERS Safety Report 8986865 (Version 1)
Quarter: 2012Q4

REPORT INFORMATION
  Report Type: 
  Country: GB (occurrence: GB)
  Receive Date: 20121227
  Receipt Date: 20121227
  Transmission Date: 20130627
  Serious: Yes (Other)
  Sender: FDA-Public Use
  Company Number: PHFR2012GB006616

PATIENT
  Sex: Male

DRUGS (1)
  1. SANDOSTATIN LAR (PATIENT BASIS) [Suspect]
     Indication: ACROMEGALY
     Dosage: UNK UKN, UNK
     Dates: start: 2004

REACTIONS (2)
  - Blood testosterone decreased [Unknown]
  - Prostate cancer [Unknown]
